FAERS Safety Report 6934134-4 (Version None)
Quarter: 2010Q3

REPORT INFORMATION
  Report Type: 
  Country: None (occurrence: None)
  Receive Date: 20100820
  Receipt Date: 20100809
  Transmission Date: 20110219
  Serious: Yes (Hospitalization)
  Sender: FDA-Public Use
  Company Number: US-JNJCH-2010018470

PATIENT
  Age: 18 Year
  Sex: Female

DRUGS (5)
  1. BENADRYL [Suspect]
     Indication: SUICIDE ATTEMPT
     Dosage: TEXT:UNSPECIFIED
     Route: 048
  2. PARACETAMOL [Suspect]
     Indication: SUICIDE ATTEMPT
     Dosage: TEXT:UNSPECIFIED
     Route: 065
  3. NAPROXEN SODIUM [Suspect]
     Indication: SUICIDE ATTEMPT
     Dosage: TEXT:UNSPECIFIED
     Route: 065
  4. IBUPROFEN [Suspect]
     Indication: SUICIDE ATTEMPT
     Dosage: TEXT:UNSPECIFIED
     Route: 065
  5. DRUG, UNSPECIFIED [Suspect]
     Indication: SUICIDE ATTEMPT
     Dosage: TEXT:UNSPECIFIED
     Route: 065

REACTIONS (1)
  - MULTIPLE DRUG OVERDOSE [None]
